FAERS Safety Report 8589433-X (Version None)
Quarter: 2012Q3

REPORT INFORMATION
  Report Type: 
  Country: None (occurrence: None)
  Receive Date: 20120731
  Receipt Date: 20120719
  Transmission Date: 20120928
  Serious: Yes (Hospitalization)
  Sender: FDA-Public Use
  Company Number: 2012MA009077

PATIENT
  Age: 8 Year
  Sex: Male

DRUGS (1)
  1. FEVERALL [Suspect]
     Indication: OTITIS MEDIA ACUTE
     Dosage: 2500 MG;X1;PO
     Route: 048
     Dates: start: 20120630, end: 20120630

REACTIONS (2)
  - MEDICATION ERROR [None]
  - OVERDOSE [None]
